FAERS Safety Report 8264924-X (Version None)
Quarter: 2012Q2

REPORT INFORMATION
  Report Type: 
  Country: None (occurrence: None)
  Receive Date: 20120406
  Receipt Date: 20120326
  Transmission Date: 20120825
  Serious: Yes (Other)
  Sender: FDA-Public Use
  Company Number: US-JNJFOC-20120313547

PATIENT
  Sex: Female

DRUGS (2)
  1. HUMIRA [Suspect]
     Indication: PRODUCT USED FOR UNKNOWN INDICATION
  2. REMICADE [Suspect]
     Indication: CROHN'S DISEASE
     Route: 042

REACTIONS (5)
  - LIVER INJURY [None]
  - SYSTEMIC LUPUS ERYTHEMATOSUS [None]
  - ADENOIDAL HYPERTROPHY [None]
  - PSORIASIS [None]
  - ADVERSE EVENT [None]
